FAERS Safety Report 14300250 (Version 1)
Quarter: 2017Q4

REPORT INFORMATION
  Report Type: Spontaneous
  Country: US (occurrence: US)
  Receive Date: 20171219
  Receipt Date: 20171219
  Transmission Date: 20180321
  Serious: No
  Sender: FDA-Public Use
  Company Number: US-TEVA-737098ACC

PATIENT
  Age: 78 Year
  Sex: Male
  Weight: 57 kg

DRUGS (13)
  1. AZITHROMYCIN TABLETS [Suspect]
     Active Substance: AZITHROMYCIN ANHYDROUS
     Dosage: 250 MILLIGRAM DAILY;
     Dates: start: 20161205, end: 20161209
  2. FLUTICASONE PROPIONATE. [Concomitant]
     Active Substance: FLUTICASONE PROPIONATE
     Dosage: 4 DOSAGE FORMS DAILY; DOCTOR PERMITS IF NEEDED
  3. VITAMIN C [Concomitant]
     Active Substance: ASCORBIC ACID
     Indication: RHINITIS
  4. OMEGA 3 FISH OIL [Concomitant]
     Active Substance: FISH OIL\OMEGA-3 FATTY ACIDS
     Dosage: 2400 MILLIGRAM DAILY;
  5. ELIDEL [Concomitant]
     Active Substance: PIMECROLIMUS
     Dosage: SELDOM USED; IRREGULAR
  6. COENZYME Q-10 [Concomitant]
  7. BETAMETHASONE DIPROPIONATE. [Concomitant]
     Active Substance: BETAMETHASONE DIPROPIONATE
     Dosage: VERY SELDOM
  8. AZELASTINE HCL ANTIHISTAMINE [Concomitant]
     Dosage: 2 DOSAGE FORMS DAILY;
  9. FLUTICASONE PROPIONATE. [Concomitant]
     Active Substance: FLUTICASONE PROPIONATE
     Dosage: 2 DOSAGE FORMS DAILY;
  10. AZITHROMYCIN TABLETS [Suspect]
     Active Substance: AZITHROMYCIN ANHYDROUS
     Indication: UPPER RESPIRATORY TRACT INFECTION
     Dosage: 250 MILLIGRAM DAILY;
     Dates: start: 20161105, end: 20161110
  11. ALLEGRA GEQ (FEXOFENADINE HYDROCHLORIDE GENERIC EQUIVALENT) [Concomitant]
     Dosage: 180 MILLIGRAM DAILY;
     Route: 048
  12. VITAMIN C [Concomitant]
     Active Substance: ASCORBIC ACID
     Indication: PRURITUS
  13. SELENIUM [Concomitant]
     Active Substance: SELENIUM
     Dosage: 200 MICROGRAM DAILY;

REACTIONS (3)
  - Rash [Recovered/Resolved]
  - Pruritus [Recovered/Resolved]
  - Drug hypersensitivity [Not Recovered/Not Resolved]

NARRATIVE: CASE EVENT DATE: 20161110
